FAERS Safety Report 7427570-3 (Version None)
Quarter: 2011Q2

REPORT INFORMATION
  Report Type: 
  Country: None (occurrence: None)
  Receive Date: 20110420
  Receipt Date: 20110412
  Transmission Date: 20111010
  Serious: No
  Sender: FDA-Public Use
  Company Number: US-RB-023913-11

PATIENT
  Age: 37 Year
  Sex: Female

DRUGS (5)
  1. SUBOXONE [Suspect]
     Indication: DRUG DEPENDENCE
     Dosage: UNKNOWN DOSING DETAILS
     Route: 065
  2. METHADONE [Suspect]
     Indication: DRUG DEPENDENCE
     Dosage: DOSING INFORMATION UNKNOWN
     Route: 065
  3. KLONOPIN [Concomitant]
  4. SUBUTEX [Suspect]
     Indication: DRUG DEPENDENCE
     Dosage: DOSING INFORMATION UNKNOWN
     Route: 065
  5. SUBOXONE [Suspect]
     Indication: DRUG DEPENDENCE
     Dosage: SUBOXONE SUBLINGUAL FILM
     Route: 060
     Dates: start: 20110301

REACTIONS (7)
  - SUBSTANCE ABUSE [None]
  - FATIGUE [None]
  - DRUG INEFFECTIVE [None]
  - DYSKINESIA [None]
  - UNDERDOSE [None]
  - HEADACHE [None]
  - DRUG WITHDRAWAL SYNDROME [None]
